FAERS Safety Report 6065351-6 (Version None)
Quarter: 2009Q1

REPORT INFORMATION
  Report Type: 
  Country: None (occurrence: None)
  Receive Date: 20090204
  Receipt Date: 20090202
  Transmission Date: 20090719
  Serious: Yes (Other)
  Sender: FDA-Public Use
  Company Number: CA-ABBOTT-08P-028-0491265-00

PATIENT
  Sex: Male
  Weight: 54.026 kg

DRUGS (3)
  1. MAVIK [Suspect]
     Indication: DRUG USE FOR UNKNOWN INDICATION
     Route: 048
  2. LOZIDE [Concomitant]
     Indication: DRUG USE FOR UNKNOWN INDICATION
  3. UNSPECIFIED MEDICATION [Concomitant]
     Indication: OSTEOPOROSIS

REACTIONS (1)
  - CLAVICLE FRACTURE [None]
